FAERS Safety Report 9328623 (Version 1)
Quarter: 2013Q2

REPORT INFORMATION
  Report Type: Spontaneous
  Country: US (occurrence: US)
  Receive Date: 20130604
  Receipt Date: 20130604
  Transmission Date: 20140414
  Serious: No
  Sender: FDA-Public Use
  Company Number: US-SANOFI-AVENTIS-2012SA025730

PATIENT
  Age: 84 Year
  Sex: Male
  Weight: 104 kg

DRUGS (10)
  1. LANTUS [Suspect]
     Indication: TYPE 2 DIABETES MELLITUS
     Dosage: DOSE:34 UNIT(S)
     Route: 058
     Dates: start: 20110716
  2. SOLOSTAR [Suspect]
     Indication: TYPE 2 DIABETES MELLITUS
     Dates: start: 20110716
  3. ATENOLOL [Concomitant]
     Indication: ATRIAL FIBRILLATION
  4. DOXAZOSIN [Concomitant]
     Indication: ATRIAL FIBRILLATION
  5. DABIGATRAN [Concomitant]
     Indication: ATRIAL FIBRILLATION
  6. DILTIAZEM [Concomitant]
     Indication: ATRIAL FIBRILLATION
  7. GABAPENTIN [Concomitant]
     Indication: SPINAL COLUMN STENOSIS
  8. BUDESONIDE/FORMOTEROL [Concomitant]
     Indication: DYSPNOEA
     Dosage: TAKING 2 PUFFS DAILY
  9. LATANOPROST [Concomitant]
     Indication: GLAUCOMA
     Dosage: TAKING ONE DROP PER EYE DAILY
  10. LISINOPRIL [Concomitant]
     Indication: BLOOD PRESSURE

REACTIONS (1)
  - Nasopharyngitis [Not Recovered/Not Resolved]
